FAERS Safety Report 8889878 (Version 1)
Quarter: 2012Q4

REPORT INFORMATION
  Report Type: Spontaneous
  Country: CA (occurrence: None)
  Receive Date: 20121031
  Receipt Date: 20121031
  Transmission Date: 20130627
  Serious: Yes (Disabling)
  Sender: FDA-Public Use
  Company Number: 2012AP003456

PATIENT
  Age: 64 Year
  Sex: Female

DRUGS (7)
  1. APO MIRTAZAPINE [Suspect]
     Route: 048
     Dates: start: 20121010, end: 20121016
  2. APO MIRTAZAPINE [Suspect]
  3. CLONAZEPAN (CLONAZEPAM) [Concomitant]
  4. RABEPRAZOLE (RABEPRAZOLE) [Concomitant]
  5. ACEBUTOLOL (ACEBUTOLOL) [Concomitant]
  6. HCT (HYDROCHLOROTHIAZIDE) [Concomitant]
  7. ROSUVASTATIN (ROSUVASTATIN) [Concomitant]

REACTIONS (9)
  - Panic attack [None]
  - Anxiety [None]
  - Drug ineffective [None]
  - Drug withdrawal headache [None]
  - Paraesthesia [None]
  - Feeling abnormal [None]
  - Crying [None]
  - Headache [None]
  - Malaise [None]
